FAERS Safety Report 4531556-6 (Version None)
Quarter: 2004Q4

REPORT INFORMATION
  Report Type: 
  Country: None (occurrence: None)
  Receive Date: 20041220
  Receipt Date: 20041209
  Transmission Date: 20050328
  Serious: Yes (Hospitalization, Other)
  Sender: FDA-Public Use
  Company Number: US-BRISTOL-MYERS SQUIBB COMPANY-12791414

PATIENT
  Age: 26 Year
  Sex: Male
  Weight: 106 kg

DRUGS (9)
  1. SERZONE [Suspect]
     Indication: DEPRESSION
     Route: 048
     Dates: start: 19940101, end: 20020526
  2. ALBUTEROL [Concomitant]
  3. BUSPIRONE [Concomitant]
  4. ALPRAZOLAM [Concomitant]
  5. HYDROXYZINE [Concomitant]
  6. OLANZAPINE [Concomitant]
  7. TIAZAC [Concomitant]
  8. ZOLOFT [Concomitant]
  9. XANAX [Concomitant]

REACTIONS (3)
  - HEPATIC STEATOSIS [None]
  - HEPATOSPLENOMEGALY [None]
  - SUICIDE ATTEMPT [None]
